FAERS Safety Report 17428131 (Version 1)
Quarter: 2020Q1

REPORT INFORMATION
  Report Type: Spontaneous
  Country: US (occurrence: US)
  Receive Date: 20200214
  Receipt Date: 20200214
  Transmission Date: 20200409
  Serious: Yes (Life-Threatening)
  Sender: FDA-Public Use
  Company Number: None

PATIENT
  Age: 76 Year
  Sex: Female
  Weight: 38 kg

DRUGS (10)
  1. CALCIUM CARBONATE 600 MG [Concomitant]
  2. TRAMADOL 50 MG [Concomitant]
     Active Substance: TRAMADOL
  3. PREGABALIN 100 MG [Concomitant]
     Active Substance: PREGABALIN
  4. FUROSEMIDE 20 MG [Concomitant]
     Active Substance: FUROSEMIDE
  5. DIPHENHYDRAMINE. [Suspect]
     Active Substance: DIPHENHYDRAMINE
     Dosage: ?          OTHER FREQUENCY:ONCE;?
     Route: 040
  6. SPIRONOLACTONE 25 MG [Concomitant]
     Active Substance: SPIRONOLACTONE
  7. FENTANYL. [Suspect]
     Active Substance: FENTANYL
     Dosage: ?          OTHER FREQUENCY:ONCE;?
     Route: 040
  8. LORATADINE 10 MG [Concomitant]
     Active Substance: LORATADINE
  9. MULTIVITIAMIN [Concomitant]
  10. LOSARTAN 100 MG [Concomitant]
     Active Substance: LOSARTAN

REACTIONS (2)
  - Procedural complication [None]
  - Hypoxia [None]

NARRATIVE: CASE EVENT DATE: 20191113
